FAERS Safety Report 17620035 (Version 1)
Quarter: 2020Q2

REPORT INFORMATION
  Report Type: Spontaneous
  Country: TR (occurrence: TR)
  Receive Date: 20200402
  Receipt Date: 20200402
  Transmission Date: 20200713
  Serious: Yes (Other)
  Sender: FDA-Public Use
  Company Number: TR-ELI_LILLY_AND_COMPANY-TR202003010494

PATIENT
  Age: 26 Year

DRUGS (2)
  1. COPELLOR 80MG [Suspect]
     Active Substance: IXEKIZUMAB
     Indication: PRODUCT USED FOR UNKNOWN INDICATION
     Dosage: UNK UNK, WEEK 0
     Route: 065
  2. COPELLOR 80MG [Suspect]
     Active Substance: IXEKIZUMAB
     Dosage: UNK UNK, WEEK 2
     Route: 065

REACTIONS (1)
  - Paternal exposure during pregnancy [Unknown]
